FAERS Safety Report 15897031 (Version 1)
Quarter: 2019Q1

REPORT INFORMATION
  Report Type: Report from Study
  Country: US (occurrence: US)
  Receive Date: 20190131
  Receipt Date: 20190131
  Transmission Date: 20190417
  Serious: Yes (Death, Other)
  Sender: FDA-Public Use
  Company Number: US-PFIZER INC-2019040428

PATIENT

DRUGS (1)
  1. PENTOSTATIN. [Suspect]
     Active Substance: PENTOSTATIN
     Indication: HAIRY CELL LEUKAEMIA
     Dosage: REDUCED DOSE, WEEKLY
     Route: 042

REACTIONS (2)
  - Renal impairment [Unknown]
  - Death [Fatal]
